FAERS Safety Report 15424490 (Version 1)
Quarter: 2018Q3

REPORT INFORMATION
  Report Type: Spontaneous
  Country: FR (occurrence: FR)
  Receive Date: 20180925
  Receipt Date: 20180925
  Transmission Date: 20181010
  Serious: Yes (Life-Threatening, Hospitalization)
  Sender: FDA-Public Use
  Company Number: FR-JNJFOC-20180924928

PATIENT
  Age: 58 Year
  Sex: Female

DRUGS (6)
  1. IXPRIM [Suspect]
     Active Substance: ACETAMINOPHEN\TRAMADOL HYDROCHLORIDE
     Indication: PRODUCT USED FOR UNKNOWN INDICATION
     Route: 002
     Dates: start: 20110525, end: 20110525
  2. RIVOTRIL [Suspect]
     Active Substance: CLONAZEPAM
     Indication: TOXICITY TO VARIOUS AGENTS
     Route: 002
     Dates: start: 20110525, end: 20110525
  3. LYSANXIA [Suspect]
     Active Substance: PRAZEPAM
     Indication: TOXICITY TO VARIOUS AGENTS
     Route: 002
     Dates: start: 20110525, end: 20110525
  4. CYMBALTA [Concomitant]
     Active Substance: DULOXETINE HYDROCHLORIDE
     Indication: PRODUCT USED FOR UNKNOWN INDICATION
     Route: 065
  5. LYRICA [Suspect]
     Active Substance: PREGABALIN
     Indication: TOXICITY TO VARIOUS AGENTS
     Route: 002
     Dates: start: 20110525, end: 20110525
  6. ATARAX [Concomitant]
     Active Substance: HYDROXYZINE HYDROCHLORIDE
     Indication: PRODUCT USED FOR UNKNOWN INDICATION
     Route: 065

REACTIONS (7)
  - Bradypnoea [Recovered/Resolved]
  - Overdose [Unknown]
  - Hypothermia [Recovered/Resolved]
  - Depressed level of consciousness [Recovered/Resolved]
  - Toxicity to various agents [Unknown]
  - Respiratory acidosis [Recovered/Resolved]
  - Hepatocellular injury [Recovered/Resolved]

NARRATIVE: CASE EVENT DATE: 20110525
